FAERS Safety Report 10331342 (Version 1)
Quarter: 2014Q3

REPORT INFORMATION
  Report Type: Spontaneous
  Country: US (occurrence: US)
  Receive Date: 20140722
  Receipt Date: 20140722
  Transmission Date: 20150326
  Serious: Yes (Hospitalization)
  Sender: FDA-Public Use
  Company Number: US-DRREDDYS-USA/USA/14/0041968

PATIENT
  Age: 63 Year
  Sex: Male

DRUGS (6)
  1. MILTEFOSINE [Suspect]
     Active Substance: MILTEFOSINE
     Indication: ENCEPHALITIS
     Route: 065
  2. SULFADIAZINE. [Suspect]
     Active Substance: SULFADIAZINE
     Indication: ENCEPHALITIS
     Route: 065
  3. DEXAMETHASONE. [Concomitant]
     Active Substance: DEXAMETHASONE
     Indication: OEDEMA
     Route: 065
  4. FLUCONAZOLE. [Suspect]
     Active Substance: FLUCONAZOLE
     Indication: ENCEPHALITIS
     Route: 065
  5. AZITHROMYCIN [Suspect]
     Active Substance: AZITHROMYCIN ANHYDROUS
     Indication: ENCEPHALITIS
     Route: 065
  6. FLUCYTOSINE. [Suspect]
     Active Substance: FLUCYTOSINE
     Indication: ENCEPHALITIS
     Route: 065

REACTIONS (3)
  - Pyrexia [Unknown]
  - Pancytopenia [Unknown]
  - Renal impairment [Unknown]
